FAERS Safety Report 4817218-6 (Version None)
Quarter: 2005Q4

REPORT INFORMATION
  Report Type: 
  Country: None (occurrence: None)
  Receive Date: 20051101
  Receipt Date: 20051021
  Transmission Date: 20060501
  Serious: Yes (Hospitalization)
  Sender: FDA-Public Use
  Company Number: FR-JNJFOC-20051005706

PATIENT
  Age: 49 Year
  Sex: Male

DRUGS (6)
  1. TOPALGIC [Suspect]
     Indication: DRUG USE FOR UNKNOWN INDICATION
     Route: 048
  2. HYTACAND (CANDESARTAN CILEXETIL, HYDROCHLOROTHIAZIDE) [Concomitant]
     Route: 048
  3. CELEBREX [Concomitant]
     Route: 048
  4. ZEFFIX [Concomitant]
     Route: 048
  5. URSOLVAN [Concomitant]
     Route: 048
  6. MOPRAL [Concomitant]
     Route: 048

REACTIONS (2)
  - RENAL FAILURE ACUTE [None]
  - URINARY RETENTION [None]
